FAERS Safety Report 9708908 (Version 1)
Quarter: 2013Q4

REPORT INFORMATION
  Report Type: Spontaneous
  Country: GB (occurrence: None)
  Receive Date: 20131122
  Receipt Date: 20131122
  Transmission Date: 20140711
  Serious: Yes (Hospitalization)
  Sender: FDA-Public Use
  Company Number: ACET20130036

PATIENT
  Age: 29 Year
  Sex: Male

DRUGS (1)
  1. Q-PAP [Suspect]
     Indication: ANALGESIC THERAPY
     Dosage: UNKNOWN, UNKNOWN, TOPICAL
     Route: 061

REACTIONS (8)
  - Skin ulcer [None]
  - Drug administered at inappropriate site [None]
  - Pain [None]
  - Necrosis [None]
  - Spirochaetal infection [None]
  - Connective tissue disorder [None]
  - Fungal infection [None]
  - Penile ulceration [None]
